FAERS Safety Report 12687312 (Version 3)
Quarter: 2017Q1

REPORT INFORMATION
  Report Type: Spontaneous
  Country: US (occurrence: US)
  Receive Date: 20160826
  Receipt Date: 20170125
  Transmission Date: 20170428
  Serious: No
  Sender: FDA-Public Use
  Company Number: US-APOTEX-2016AP009902

PATIENT
  Age: 62 Year
  Sex: Female

DRUGS (6)
  1. PAXIL [Suspect]
     Active Substance: PAROXETINE HYDROCHLORIDE
     Indication: DEPRESSION
     Dosage: 40 MG, UNK
     Route: 065
     Dates: start: 2012, end: 201606
  2. PAROXETINE TRANSDERMAL PATCH [Suspect]
     Active Substance: PAROXETINE
     Indication: ANXIETY
  3. PAROXETINE TRANSDERMAL PATCH [Suspect]
     Active Substance: PAROXETINE
     Indication: DEPRESSION
     Dosage: UNK
     Route: 065
     Dates: start: 2012, end: 201606
  4. ESTRADIOL. [Concomitant]
     Active Substance: ESTRADIOL
     Indication: PRODUCT USED FOR UNKNOWN INDICATION
     Route: 065
  5. PEXEVA [Concomitant]
     Active Substance: PAROXETINE MESYLATE
     Indication: DEPRESSION
     Route: 065
  6. PEXEVA [Concomitant]
     Active Substance: PAROXETINE MESYLATE
     Indication: ANXIETY

REACTIONS (3)
  - Withdrawal syndrome [Not Recovered/Not Resolved]
  - Disease recurrence [Unknown]
  - Drug ineffective [Recovered/Resolved]

NARRATIVE: CASE EVENT DATE: 2012
